FAERS Safety Report 5741348-8 (Version None)
Quarter: 2008Q2

REPORT INFORMATION
  Report Type: 
  Country: None (occurrence: None)
  Receive Date: 20080513
  Receipt Date: 20080428
  Transmission Date: 20081010
  Serious: Yes (Other)
  Sender: FDA-Public Use
  Company Number: 2008PL000057

PATIENT
  Age: 60 Year
  Sex: Female

DRUGS (3)
  1. AZATHIOPRINE [Suspect]
     Indication: IMMUNOSUPPRESSANT DRUG THERAPY
     Dosage: 50 MG;QD;PO
     Route: 048
     Dates: start: 20020101
  2. PREDNISOLONE [Concomitant]
  3. FK [Concomitant]

REACTIONS (3)
  - TENDON DISORDER [None]
  - TENDON RUPTURE [None]
  - URINARY TRACT INFECTION [None]
